FAERS Safety Report 5990726-0 (Version None)
Quarter: 2008Q4

REPORT INFORMATION
  Report Type: 
  Country: None (occurrence: None)
  Receive Date: 20081211
  Receipt Date: 20081202
  Transmission Date: 20090506
  Serious: Yes (Hospitalization)
  Sender: FDA-Public Use
  Company Number: NO-ASTRAZENECA-2008SE05575

PATIENT
  Age: 82 Year
  Sex: Female

DRUGS (3)
  1. LISINOPRIL [Suspect]
     Indication: HYPERTENSION
     Route: 048
     Dates: start: 20000101, end: 20081118
  2. ARICEPT [Suspect]
     Indication: DEMENTIA
     Route: 048
     Dates: start: 20081116, end: 20081118
  3. SOBRIL [Suspect]
     Route: 048
     Dates: start: 20081102, end: 20081118

REACTIONS (5)
  - BALANCE DISORDER [None]
  - DIARRHOEA [None]
  - FALL [None]
  - ORTHOSTATIC HYPOTENSION [None]
  - VOMITING [None]
